FAERS Safety Report 9654544 (Version 1)
Quarter: 2013Q4

REPORT INFORMATION
  Report Type: Spontaneous
  Country: US (occurrence: US)
  Receive Date: 20131029
  Receipt Date: 20131029
  Transmission Date: 20140711
  Serious: No
  Sender: FDA-Public Use
  Company Number: US-BIOGENIDEC-2013BI085030

PATIENT
  Sex: Male

DRUGS (6)
  1. TECFIDERA [Suspect]
     Indication: MULTIPLE SCLEROSIS
     Route: 048
     Dates: start: 20130620
  2. ATORVASTATIN CALCIUM [Concomitant]
  3. BABY ASA [Concomitant]
  4. CLOPIDOGEL BISULFATE [Concomitant]
  5. ERGOCALCIFEROL [Concomitant]
  6. LEVETIR ACETAM [Concomitant]

REACTIONS (2)
  - Asthenia [Unknown]
  - Mobility decreased [Unknown]
